FAERS Safety Report 26150404 (Version 1)
Quarter: 2025Q4

REPORT INFORMATION
  Report Type: Spontaneous
  Country: CN (occurrence: CN)
  Receive Date: 20251212
  Receipt Date: 20251212
  Transmission Date: 20260119
  Serious: Yes (Death, Other)
  Sender: ALEXION PHARMACEUTICALS
  Company Number: CN-ASTRAZENECA-202512GLO007116CN

PATIENT
  Age: 76 Year
  Sex: Female

DRUGS (5)
  1. OLAPARIB [Suspect]
     Active Substance: OLAPARIB
     Indication: Ovarian cancer metastatic
     Dosage: 300 MILLIGRAM, BID
     Route: 065
     Dates: start: 20211217
  2. OLAPARIB [Suspect]
     Active Substance: OLAPARIB
     Dosage: 300 MG MORNING + 150 MG EVENING, BID
     Route: 065
  3. CARBOPLATIN [Concomitant]
     Active Substance: CARBOPLATIN
     Indication: Ovarian cancer metastatic
     Dosage: UNK
  4. PACLITAXEL [Concomitant]
     Active Substance: PACLITAXEL
     Indication: Ovarian cancer metastatic
     Dosage: 135 MILLIGRAM/SQ. METER
  5. NEDAPLATIN [Concomitant]
     Active Substance: NEDAPLATIN
     Indication: Ovarian cancer metastatic
     Dosage: 80 MILLIGRAM/SQ. METER

REACTIONS (4)
  - Myeloid leukaemia [Fatal]
  - Haemorrhage [Fatal]
  - Infection [Fatal]
  - Myelosuppression [Recovered/Resolved]
